FAERS Safety Report 5840135-X (Version None)
Quarter: 2008Q3

REPORT INFORMATION
  Report Type: 
  Country: None (occurrence: None)
  Receive Date: 20080807
  Receipt Date: 20080807
  Transmission Date: 20090109
  Serious: Yes (Hospitalization)
  Sender: FDA-Public Use
  Company Number: None

PATIENT
  Age: 81 Year
  Sex: Female
  Weight: 67.1324 kg

DRUGS (4)
  1. ZETIA [Suspect]
     Dosage: 1 DAILY
     Dates: start: 20080524, end: 20080622
  2. ADALAT [Concomitant]
  3. HYOSCYAMINE [Concomitant]
  4. VITAMIN TAB [Concomitant]

REACTIONS (4)
  - DIZZINESS [None]
  - MYALGIA [None]
  - NAUSEA [None]
  - OEDEMA PERIPHERAL [None]
